FAERS Safety Report 5877453-5 (Version None)
Quarter: 2008Q3

REPORT INFORMATION
  Report Type: 
  Country: None (occurrence: None)
  Receive Date: 20080909
  Receipt Date: 20080825
  Transmission Date: 20090109
  Serious: Yes (Hospitalization, Other)
  Sender: FDA-Public Use
  Company Number: 2008US002243

PATIENT
  Age: 33 Year
  Sex: Female

DRUGS (16)
  1. PROGRAF [Suspect]
     Indication: LIVER TRANSPLANT
     Dates: start: 20070517
  2. PROCRIT [Suspect]
     Indication: ANAEMIA OF CHRONIC DISEASE
     Dosage: 40000 IU, OTHER, SUBCUTANEOUS, 40000 IU, OTHER, UNK, 4000 IU, WEEKLY, UNK
     Route: 058
     Dates: start: 20071213, end: 20080221
  3. PROCRIT [Suspect]
     Indication: ANAEMIA OF CHRONIC DISEASE
     Dosage: 40000 IU, OTHER, SUBCUTANEOUS, 40000 IU, OTHER, UNK, 4000 IU, WEEKLY, UNK
     Route: 058
     Dates: start: 20080401, end: 20080501
  4. PROCRIT [Suspect]
     Indication: ANAEMIA OF CHRONIC DISEASE
     Dosage: 40000 IU, OTHER, SUBCUTANEOUS, 40000 IU, OTHER, UNK, 4000 IU, WEEKLY, UNK
     Route: 058
     Dates: start: 20080601, end: 20080601
  5. PEG-INTRON [Suspect]
     Indication: HEPATITIS C
     Dates: start: 20071011, end: 20080709
  6. CELLCEPT [Suspect]
     Indication: DRUG USE FOR UNKNOWN INDICATION
     Dates: start: 20070517, end: 20080425
  7. RIBAVIRIN [Suspect]
     Indication: DRUG USE FOR UNKNOWN INDICATION
     Dates: start: 20071011, end: 20080709
  8. CIPRO [Concomitant]
  9. CELEXA [Concomitant]
  10. REGLAN [Concomitant]
  11. ZOSYN [Concomitant]
  12. RANITIDINE [Concomitant]
  13. VANCOMYCIN [Concomitant]
  14. TYLENOL (CAPLET) [Concomitant]
  15. BENADRYL [Concomitant]
  16. PHENERGAN HCL [Concomitant]

REACTIONS (8)
  - ACTIVATED PARTIAL THROMBOPLASTIN TIME PROLONGED [None]
  - APLASIA PURE RED CELL [None]
  - DRUG INEFFECTIVE [None]
  - HEPATIC FAILURE [None]
  - KLEBSIELLA SEPSIS [None]
  - PROTHROMBIN TIME PROLONGED [None]
  - SERUM FERRITIN INCREASED [None]
  - THROMBOCYTOPENIA [None]
